FAERS Safety Report 7637187-3 (Version None)
Quarter: 2011Q3

REPORT INFORMATION
  Report Type: 
  Country: None (occurrence: None)
  Receive Date: 20110726
  Receipt Date: 20110712
  Transmission Date: 20111222
  Serious: Yes (Hospitalization)
  Sender: FDA-Public Use
  Company Number: PHHY2011KR62601

PATIENT

DRUGS (1)
  1. CARBAMAZEPINE [Suspect]
     Dosage: UNK UKN, UNK

REACTIONS (6)
  - PARAESTHESIA [None]
  - ERYTHEMA [None]
  - HEADACHE [None]
  - SKIN LESION [None]
  - RASH MACULO-PAPULAR [None]
  - HERPES ZOSTER [None]
